FAERS Safety Report 25186746 (Version 2)
Quarter: 2025Q4

REPORT INFORMATION
  Report Type: Spontaneous
  Country: US (occurrence: US)
  Receive Date: 20250411
  Receipt Date: 20251010
  Transmission Date: 20260118
  Serious: Yes (Hospitalization, Other)
  Sender: NOVO NORDISK
  Company Number: US-NOVOPROD-1404028

PATIENT
  Age: 63 Year
  Sex: Female
  Weight: 97 kg

DRUGS (14)
  1. OZEMPIC [Suspect]
     Active Substance: SEMAGLUTIDE
     Dosage: 0.5 MG, QW
     Dates: start: 20230406, end: 20230510
  2. OZEMPIC [Suspect]
     Active Substance: SEMAGLUTIDE
     Indication: Weight control
     Dosage: 0.25 MG, QW
     Dates: start: 20230320, end: 20230406
  3. NAPROXEN [Concomitant]
     Active Substance: NAPROXEN
     Indication: Joint effusion
     Dosage: UNK
     Dates: start: 20221115, end: 20230406
  4. NAPROXEN [Concomitant]
     Active Substance: NAPROXEN
     Indication: Pain
  5. LEVOTHYROXINE [Concomitant]
     Active Substance: LEVOTHYROXINE
     Indication: Hypothyroidism
     Dosage: UNK
     Dates: start: 20230406, end: 20231130
  6. OMEPRAZOLE [Concomitant]
     Active Substance: OMEPRAZOLE
     Indication: Gastrooesophageal reflux disease
     Dosage: UNK
     Dates: start: 20230406
  7. REQUIP [Concomitant]
     Active Substance: ROPINIROLE HYDROCHLORIDE
     Indication: Restless legs syndrome
     Dosage: UNK
     Dates: start: 20230217, end: 20230713
  8. NICODERM CQ [Concomitant]
     Active Substance: NICOTINE
     Indication: Nicotine dependence
     Dosage: UNK
     Dates: start: 20230105, end: 20230601
  9. VENTOLIN HFA [Concomitant]
     Active Substance: ALBUTEROL SULFATE
     Indication: Asthma
     Dosage: UNK
     Dates: start: 20180523, end: 20240319
  10. ALBUTEROL SULFATE [Concomitant]
     Active Substance: ALBUTEROL SULFATE
     Indication: Asthma
     Dosage: UNK
     Dates: start: 20220517, end: 20230517
  11. FLOVENT HFA [Concomitant]
     Active Substance: FLUTICASONE PROPIONATE
     Indication: Asthma
     Dosage: UNK
     Dates: start: 20220617, end: 20240319
  12. OMEPRAZOLE [Concomitant]
     Active Substance: OMEPRAZOLE
     Indication: Gastrooesophageal reflux disease
     Dosage: UNK
     Dates: start: 20240205, end: 20240505
  13. PROMETHAZINE [Concomitant]
     Active Substance: PROMETHAZINE HYDROCHLORIDE
     Indication: Cough
     Dosage: UNK
     Dates: start: 20221115, end: 20230601
  14. METHYLPREDNISOLONE [Concomitant]
     Active Substance: METHYLPREDNISOLONE
     Indication: Cough
     Dosage: UNK
     Dates: start: 20221115, end: 20230601

REACTIONS (3)
  - Intestinal obstruction [Recovered/Resolved]
  - Ileus [Recovered/Resolved]
  - Off label use [Unknown]

NARRATIVE: CASE EVENT DATE: 20230320
